FAERS Safety Report 15926865 (Version 2)
Quarter: 2019Q1

REPORT INFORMATION
  Report Type: Spontaneous
  Country: US (occurrence: US)
  Receive Date: 20190205
  Receipt Date: 20190219
  Transmission Date: 20190417
  Serious: No
  Sender: FDA-Public Use
  Company Number: US-ALLERGAN-1853163US

PATIENT
  Sex: Female

DRUGS (1)
  1. BOTOX [Suspect]
     Active Substance: ONABOTULINUMTOXINA
     Indication: INJURY
     Dosage: UNK
     Route: 030
     Dates: start: 2016, end: 2016

REACTIONS (5)
  - Off label use [Unknown]
  - Muscular weakness [Not Recovered/Not Resolved]
  - Drug ineffective [Unknown]
  - Balance disorder [Not Recovered/Not Resolved]
  - Adverse event [Not Recovered/Not Resolved]

NARRATIVE: CASE EVENT DATE: 2016
